FAERS Safety Report 14306057 (Version 2)
Quarter: 2018Q1

REPORT INFORMATION
  Report Type: Spontaneous
  Country: GB (occurrence: GB)
  Receive Date: 20171219
  Receipt Date: 20180102
  Transmission Date: 20180509
  Serious: Yes (Hospitalization)
  Sender: FDA-Public Use
  Company Number: GB-SA-2017SA245778

PATIENT
  Age: 37 Year
  Sex: Male

DRUGS (2)
  1. ALEMTUZUMAB [Suspect]
     Active Substance: ALEMTUZUMAB
     Route: 041
     Dates: start: 201509, end: 201509
  2. ALEMTUZUMAB [Suspect]
     Active Substance: ALEMTUZUMAB
     Route: 041
     Dates: start: 201609, end: 201609

REACTIONS (6)
  - Petechiae [Recovering/Resolving]
  - Platelet count decreased [Recovered/Resolved]
  - Contusion [Recovering/Resolving]
  - Immune thrombocytopenic purpura [Recovered/Resolved]
  - Epistaxis [Recovered/Resolved]
  - Lymphocyte count decreased [Unknown]
